FAERS Safety Report 4869122-5 (Version None)
Quarter: 2005Q4

REPORT INFORMATION
  Report Type: 
  Country: None (occurrence: None)
  Receive Date: 20051230
  Receipt Date: 20051221
  Transmission Date: 20060501
  Serious: Yes (Hospitalization)
  Sender: FDA-Public Use
  Company Number: JP-JNJFOC-20050502677

PATIENT
  Sex: Male
  Weight: 69.8 kg

DRUGS (19)
  1. REMICADE [Suspect]
     Route: 042
  2. REMICADE [Suspect]
     Route: 042
  3. REMICADE [Suspect]
     Dosage: FOURTH DOSE
     Route: 042
  4. REMICADE [Suspect]
     Route: 042
  5. REMICADE [Suspect]
     Dosage: SECOND DOSE
     Route: 042
  6. REMICADE [Suspect]
     Indication: RHEUMATOID ARTHRITIS
     Route: 042
  7. RHEUMATREX [Suspect]
     Route: 048
  8. RHEUMATREX [Suspect]
     Route: 048
  9. RHEUMATREX [Suspect]
     Route: 048
  10. RHEUMATREX [Suspect]
     Indication: RHEUMATOID ARTHRITIS
     Route: 048
  11. PREDONIN [Suspect]
     Indication: RHEUMATOID ARTHRITIS
     Route: 048
  12. LOXONIN [Concomitant]
     Indication: RHEUMATOID ARTHRITIS
     Route: 048
  13. FOLIAMIN [Concomitant]
     Indication: PROPHYLAXIS
     Route: 048
  14. AMLODIPINE BESYLATE [Concomitant]
     Route: 048
  15. HARNAL [Concomitant]
     Route: 048
  16. MUCODYNE [Concomitant]
     Indication: BRONCHIECTASIS
     Route: 048
  17. GASTER-D [Concomitant]
     Route: 048
  18. RYTHMODAN [Concomitant]
     Route: 048
  19. DIFLUCAN [Concomitant]
     Route: 065

REACTIONS (8)
  - ABDOMINAL PAIN [None]
  - ACINETOBACTER INFECTION [None]
  - BLOOD PRESSURE INCREASED [None]
  - CHILLS [None]
  - INFUSION RELATED REACTION [None]
  - PNEUMONIA [None]
  - PNEUMONITIS CRYPTOCOCCAL [None]
  - PYREXIA [None]
